FAERS Safety Report 9423739 (Version 3)
Quarter: 2013Q3

REPORT INFORMATION
  Report Type: Report from Study
  Country: US (occurrence: US)
  Receive Date: 20130728
  Receipt Date: 20130809
  Transmission Date: 20140515
  Serious: Yes (Hospitalization, Other)
  Sender: FDA-Public Use
  Company Number: PHEH2013US015636

PATIENT
  Sex: Female

DRUGS (12)
  1. TASIGNA [Suspect]
     Indication: CHRONIC MYELOID LEUKAEMIA
     Dosage: 300 MG, BID
     Route: 048
     Dates: start: 20130621, end: 20130628
  2. ISOSORBIDE [Concomitant]
  3. LASIX [Concomitant]
  4. INSULIN [Concomitant]
  5. METOPROLOL [Concomitant]
  6. POTASSIUM [Concomitant]
  7. VITAMIN D [Concomitant]
  8. MULTI-VIT [Concomitant]
  9. NITROGLYCERIN [Concomitant]
  10. ASPIRIN [Concomitant]
  11. CRESTOR [Concomitant]
  12. SYNTHROID [Concomitant]

REACTIONS (12)
  - Cardiac disorder [Unknown]
  - Eating disorder [Unknown]
  - Malaise [Unknown]
  - Renal failure acute [Recovering/Resolving]
  - Blood creatinine increased [Unknown]
  - Dehydration [Recovering/Resolving]
  - Electrocardiogram QT prolonged [Recovering/Resolving]
  - Thrombosis [Unknown]
  - Toxicity to various agents [Unknown]
  - Feeling hot [Unknown]
  - Abdominal discomfort [Unknown]
  - Drug ineffective [Unknown]
